FAERS Safety Report 16017367 (Version 2)
Quarter: 2019Q1

REPORT INFORMATION
  Report Type: Spontaneous
  Country: JP (occurrence: JP)
  Receive Date: 20190228
  Receipt Date: 20190314
  Transmission Date: 20190418
  Serious: Yes (Hospitalization, Other)
  Sender: FDA-Public Use
  Company Number: JP-BRISTOL-MYERS SQUIBB COMPANY-BMS-2019-020171

PATIENT
  Age: 81 Year
  Sex: Female
  Weight: 39.5 kg

DRUGS (1)
  1. YERVOY [Suspect]
     Active Substance: IPILIMUMAB
     Indication: OESOPHAGEAL CARCINOMA
     Route: 065

REACTIONS (6)
  - Malaise [Unknown]
  - Anaemia [Unknown]
  - Pyrexia [Recovering/Resolving]
  - Tongue dry [Unknown]
  - Hypophysitis [Unknown]
  - Altered state of consciousness [Recovering/Resolving]

NARRATIVE: CASE EVENT DATE: 201605
